FAERS Safety Report 24245534 (Version 8)
Quarter: 2025Q1

REPORT INFORMATION
  Report Type: Report from Study
  Country: US (occurrence: US)
  Receive Date: 20240824
  Receipt Date: 20250318
  Transmission Date: 20250409
  Serious: Yes (Hospitalization, Other)
  Sender: ABBVIE
  Company Number: US-ABBVIE-5887394

PATIENT
  Age: 63 Year
  Sex: Male
  Weight: 108.86 kg

DRUGS (14)
  1. VENCLEXTA [Suspect]
     Active Substance: VENETOCLAX
     Indication: Chronic lymphocytic leukaemia
     Dosage: STRENGTH 100 MG
     Route: 048
     Dates: start: 20240208, end: 202408
  2. VENCLEXTA [Suspect]
     Active Substance: VENETOCLAX
     Indication: Chronic lymphocytic leukaemia
     Route: 048
     Dates: start: 202408, end: 202408
  3. VENCLEXTA [Suspect]
     Active Substance: VENETOCLAX
     Indication: Chronic lymphocytic leukaemia
     Dosage: DRUG STOP DATE: 2024, STRENGTH 100 MG
     Route: 048
     Dates: start: 202408
  4. VENCLEXTA [Suspect]
     Active Substance: VENETOCLAX
     Indication: Chronic lymphocytic leukaemia
     Dosage: DRUG START DATE: 2024
     Route: 048
  5. GLIMEPIRIDE [Concomitant]
     Active Substance: GLIMEPIRIDE
     Indication: Diabetes mellitus
  6. CALQUENCE [Suspect]
     Active Substance: ACALABRUTINIB
     Indication: Product used for unknown indication
     Route: 065
  7. DULOXETINE [Concomitant]
     Active Substance: DULOXETINE
     Indication: Depression
  8. LOVENOX [Suspect]
     Active Substance: ENOXAPARIN SODIUM
     Indication: Thrombosis
     Route: 065
  9. PREGABALIN [Concomitant]
     Active Substance: PREGABALIN
     Indication: Neuropathy peripheral
  10. JANUVIA [Concomitant]
     Active Substance: SITAGLIPTIN PHOSPHATE
     Indication: Diabetes mellitus
  11. METFORMIN [Concomitant]
     Active Substance: METFORMIN HYDROCHLORIDE
     Indication: Diabetes mellitus
  12. ARMODAFINIL [Concomitant]
     Active Substance: ARMODAFINIL
     Indication: Fatigue
  13. BUSPIRONE [Concomitant]
     Active Substance: BUSPIRONE HYDROCHLORIDE
     Indication: Anxiety
  14. OZEMPIC [Concomitant]
     Active Substance: SEMAGLUTIDE
     Indication: Diabetes mellitus
     Dosage: 0.50
     Dates: start: 2025

REACTIONS (28)
  - Retinal detachment [Recovered/Resolved]
  - Pulmonary embolism [Unknown]
  - Dyspnoea [Unknown]
  - Neuropathy peripheral [Unknown]
  - Eye haemorrhage [Recovered/Resolved]
  - Cataract [Recovering/Resolving]
  - Nausea [Not Recovered/Not Resolved]
  - Hypersensitivity [Recovered/Resolved]
  - Constipation [Recovered/Resolved]
  - Arthralgia [Not Recovered/Not Resolved]
  - Mobility decreased [Unknown]
  - Thrombosis [Unknown]
  - Memory impairment [Unknown]
  - Fatigue [Not Recovered/Not Resolved]
  - Toxicity to various agents [Not Recovered/Not Resolved]
  - Eye haemorrhage [Recovered/Resolved]
  - Hypokalaemia [Unknown]
  - Dizziness [Unknown]
  - Nasopharyngitis [Unknown]
  - Oropharyngeal pain [Unknown]
  - Post-traumatic stress disorder [Unknown]
  - Depression [Unknown]
  - Haemorrhage [Unknown]
  - Diarrhoea [Not Recovered/Not Resolved]
  - Hyperhidrosis [Unknown]
  - Rotator cuff syndrome [Not Recovered/Not Resolved]
  - Neuralgia [Unknown]
  - Injury [Unknown]

NARRATIVE: CASE EVENT DATE: 20230601
